FAERS Safety Report 10956766 (Version 1)
Quarter: 2015Q1

REPORT INFORMATION
  Report Type: Spontaneous
  Country: US (occurrence: US)
  Receive Date: 20150326
  Receipt Date: 20150326
  Transmission Date: 20150721
  Serious: No
  Sender: FDA-Public Use
  Company Number: US-MYLANLABS-2014M1001588

PATIENT
  Sex: Female

DRUGS (1)
  1. EMSAM [Suspect]
     Active Substance: SELEGILINE
     Dosage: UNK
     Route: 062

REACTIONS (1)
  - Application site erythema [Not Recovered/Not Resolved]
